FAERS Safety Report 8885874 (Version 5)
Quarter: 2012Q4

REPORT INFORMATION
  Report Type: Report from Study
  Country: NL (occurrence: NL)
  Receive Date: 20121101
  Receipt Date: 20121211
  Transmission Date: 20130627
  Serious: Yes (Death, Hospitalization)
  Sender: FDA-Public Use
  Company Number: NL-CELGENEUS-114-20785-12102895

PATIENT
  Age: 83 Year
  Sex: Male
  Weight: 62 kg

DRUGS (10)
  1. THALIDOMIDE [Suspect]
     Indication: MULTIPLE MYELOMA
     Route: 048
     Dates: start: 20110927, end: 20120917
  2. THALIDOMIDE [Suspect]
     Route: 048
     Dates: start: 20110110, end: 201108
  3. THALIDOMIDE [Suspect]
     Route: 048
     Dates: start: 20110927, end: 20121003
  4. MELPHALAN [Suspect]
     Indication: MULTIPLE MYELOMA
     Route: 065
     Dates: start: 20110111, end: 201108
  5. MELPHALAN [Suspect]
     Route: 065
     Dates: end: 20120902
  6. PREDNISOLONE [Suspect]
     Indication: MULTIPLE MYELOMA
     Route: 065
     Dates: start: 20110111, end: 201108
  7. PREDNISOLONE [Suspect]
     Route: 065
     Dates: end: 20120902
  8. SIMVASTATINE [Concomitant]
     Indication: HYPERCHOLESTEROLAEMIA
     Route: 048
     Dates: start: 20100728, end: 20121022
  9. VALSARTAN [Concomitant]
     Indication: ESSENTIAL HYPERTENSION
     Route: 048
     Dates: start: 19970226, end: 20121022
  10. ASCAL [Concomitant]
     Indication: THROMBOSIS PROPHYLAXIS
     Dosage: 100 Milligram
     Route: 065

REACTIONS (2)
  - Colon cancer metastatic [Fatal]
  - Myocardial infarction [Fatal]
